FAERS Safety Report 9251352 (Version 1)
Quarter: 2013Q2

REPORT INFORMATION
  Report Type: Spontaneous
  Country: US (occurrence: US)
  Receive Date: 20130424
  Receipt Date: 20130424
  Transmission Date: 20140414
  Serious: Yes (Other)
  Sender: FDA-Public Use
  Company Number: US-PFIZER INC-2013125186

PATIENT
  Age: 70 Year
  Sex: Female
  Weight: 128 kg

DRUGS (1)
  1. TOVIAZ [Suspect]
     Indication: URINARY INCONTINENCE
     Dosage: UNK

REACTIONS (4)
  - Weight decreased [Unknown]
  - Vulvovaginal pain [Not Recovered/Not Resolved]
  - Vulvovaginal discomfort [Not Recovered/Not Resolved]
  - Drug ineffective [Unknown]
